FAERS Safety Report 5324194-9 (Version None)
Quarter: 2007Q2

REPORT INFORMATION
  Report Type: 
  Country: None (occurrence: None)
  Receive Date: 20070514
  Receipt Date: 20070510
  Transmission Date: 20071010
  Serious: Yes (Hospitalization)
  Sender: FDA-Public Use
  Company Number: GB-BRISTOL-MYERS SQUIBB COMPANY-13774989

PATIENT
  Age: 61 Year
  Sex: Female

DRUGS (14)
  1. ACETYLSALICYLIC ACID SRT [Suspect]
     Route: 048
  2. WARFARIN [Suspect]
     Route: 048
  3. BECLOMETHASONE DIPROPIONATE [Concomitant]
  4. CARMELLOSE SODIUM [Concomitant]
  5. CO-CODAMOL [Concomitant]
  6. DIGOXIN [Concomitant]
  7. DILZEM [Concomitant]
  8. LANSOPRAZOLE [Concomitant]
  9. LIPITOR [Concomitant]
  10. RAMIPRIL [Concomitant]
  11. SALBUTAMOL [Concomitant]
  12. SENNA [Concomitant]
  13. SEREVENT [Concomitant]
  14. GLYCERYL TRINITRATE [Concomitant]

REACTIONS (4)
  - HAEMOGLOBIN DECREASED [None]
  - HIATUS HERNIA [None]
  - OESOPHAGITIS [None]
  - ULCER [None]
